FAERS Safety Report 8005371-5 (Version None)
Quarter: 2011Q4

REPORT INFORMATION
  Report Type: 
  Country: None (occurrence: None)
  Receive Date: 20111223
  Receipt Date: 20111221
  Transmission Date: 20120403
  Serious: Yes (Other)
  Sender: FDA-Public Use
  Company Number: US-PFIZER INC-2011311253

PATIENT
  Sex: Female

DRUGS (1)
  1. DEPO-PROVERA [Suspect]
     Indication: CONTRACEPTION
     Dosage: UNK

REACTIONS (9)
  - MUSCLE SPASMS [None]
  - ABORTION SPONTANEOUS [None]
  - DYSMENORRHOEA [None]
  - WEIGHT INCREASED [None]
  - UNINTENDED PREGNANCY [None]
  - HYPOAESTHESIA [None]
  - DRUG INEFFECTIVE [None]
  - ABDOMINAL DISTENSION [None]
  - BACK PAIN [None]
